FAERS Safety Report 6022652-5 (Version None)
Quarter: 2008Q4

REPORT INFORMATION
  Report Type: 
  Country: None (occurrence: None)
  Receive Date: 20081222
  Receipt Date: 20081222
  Transmission Date: 20090506
  Serious: Yes (Hospitalization, Disabling, Other)
  Sender: FDA-Public Use
  Company Number: None

PATIENT
  Age: 73 Year
  Sex: Female
  Weight: 90.7194 kg

DRUGS (1)
  1. METOPROLOL SUCCINATE [Suspect]
     Indication: MITRAL VALVE PROLAPSE
     Dosage: ONE PER DAY PO
     Route: 048
     Dates: start: 20080930, end: 20081017

REACTIONS (3)
  - HEART RATE INCREASED [None]
  - HYPERTENSION [None]
  - THERAPEUTIC RESPONSE UNEXPECTED WITH DRUG SUBSTITUTION [None]
